FAERS Safety Report 14615118 (Version 1)
Quarter: 2018Q1

REPORT INFORMATION
  Report Type: Spontaneous
  Country: JP (occurrence: JP)
  Receive Date: 20180308
  Receipt Date: 20180308
  Transmission Date: 20180509
  Serious: Yes (Death)
  Sender: FDA-Public Use
  Company Number: JP-PFIZER INC-2018098153

PATIENT
  Age: 46 Year
  Sex: Female
  Weight: 58.1 kg

DRUGS (11)
  1. PREDNISOLONE. [Suspect]
     Active Substance: PREDNISOLONE
     Dosage: UNK (HIGH DOSAGE)
  2. METHYLPREDNISOLONE SODIUM SUCCINATE. [Suspect]
     Active Substance: METHYLPREDNISOLONE SODIUM SUCCINATE
     Indication: SYSTEMIC LUPUS ERYTHEMATOSUS
     Dosage: 1000 MG, UNK (PULSE THERAPY)
  3. PREDNISOLONE. [Suspect]
     Active Substance: PREDNISOLONE
     Indication: SYSTEMIC LUPUS ERYTHEMATOSUS
     Dosage: 45 MG, UNK (0.8 MG/KG)
  4. PREDNISOLONE. [Suspect]
     Active Substance: PREDNISOLONE
     Dosage: 40 MG, UNK
  5. METHYLPREDNISOLONE SODIUM SUCCINATE. [Suspect]
     Active Substance: METHYLPREDNISOLONE SODIUM SUCCINATE
     Indication: LUPUS NEPHRITIS
     Dosage: 2000 MG, UNK (ADDITIONAL GLUCOCORTICOID PULSE THERAPY)
  6. TACROLIMUS. [Concomitant]
     Active Substance: TACROLIMUS
     Indication: SYSTEMIC LUPUS ERYTHEMATOSUS
     Dosage: 3 MG, DAILY
  7. TACROLIMUS. [Concomitant]
     Active Substance: TACROLIMUS
     Indication: LUPUS NEPHRITIS
  8. METHYLPREDNISOLONE SODIUM SUCCINATE. [Suspect]
     Active Substance: METHYLPREDNISOLONE SODIUM SUCCINATE
     Dosage: UNK (ADDITIONAL GLUCOCORTICOID PULSE THERAPY)
  9. MYCOPHENOLATE MOFETIL. [Suspect]
     Active Substance: MYCOPHENOLATE MOFETIL
     Indication: SYSTEMIC LUPUS ERYTHEMATOSUS
     Dosage: 500 MG, DAILY
  10. PREDNISOLONE. [Suspect]
     Active Substance: PREDNISOLONE
     Indication: LUPUS NEPHRITIS
     Dosage: UNK (TAPERED BY 5 MG EVERY 4 WEEKS)
  11. MYCOPHENOLATE MOFETIL. [Suspect]
     Active Substance: MYCOPHENOLATE MOFETIL
     Indication: LUPUS NEPHRITIS
     Dosage: 1500 MG, UNK (INCREASED TO 1500 MG)

REACTIONS (1)
  - Disseminated varicella zoster vaccine virus infection [Fatal]
